FAERS Safety Report 9659665 (Version 1)
Quarter: 2013Q4

REPORT INFORMATION
  Report Type: Spontaneous
  Country: JP (occurrence: JP)
  Receive Date: 20131031
  Receipt Date: 20131031
  Transmission Date: 20140711
  Serious: Yes (Death)
  Sender: FDA-Public Use
  Company Number: JP-JNJFOC-20131018263

PATIENT
  Age: 70 Year
  Sex: 0

DRUGS (1)
  1. FINIBAX [Suspect]
     Indication: POST PROCEDURAL INFECTION
     Route: 041
     Dates: start: 20131017, end: 20131024

REACTIONS (1)
  - Pulmonary haemorrhage [Fatal]
